FAERS Safety Report 7455281-7 (Version None)
Quarter: 2011Q2

REPORT INFORMATION
  Report Type: 
  Country: None (occurrence: None)
  Receive Date: 20110503
  Receipt Date: 20110428
  Transmission Date: 20111010
  Serious: Yes (Hospitalization)
  Sender: FDA-Public Use
  Company Number: DE-SHIRE-SPV1-2011-00459

PATIENT
  Age: 15 Year
  Sex: Female
  Weight: 58 kg

DRUGS (8)
  1. FORMOTEROL FUMARATE [Concomitant]
     Indication: PRODUCT USED FOR UNKNOWN INDICATION
     Dosage: 1 DF, 2X/DAY:BID
     Route: 055
  2. XAGRID [Suspect]
     Dosage: 1 MG IN THE AM AND 0.5 MG IN THE PM
     Route: 048
     Dates: start: 20110228, end: 20110302
  3. XAGRID [Suspect]
     Indication: THROMBOCYTOSIS
     Dosage: 1 MG, 2X/DAY:BID
     Route: 048
     Dates: start: 20110303, end: 20110320
  4. XAGRID [Suspect]
     Dosage: 0.5 MG, 2X/DAY:BID
     Route: 048
     Dates: start: 20110322
  5. ASPIRIN [Concomitant]
     Indication: THROMBOCYTOSIS
     Dosage: 100 MG, 1X/DAY:QD
     Route: 048
     Dates: end: 20110309
  6. JODETTEN [Concomitant]
     Indication: PRODUCT USED FOR UNKNOWN INDICATION
     Dosage: 1500 ?G, 1X/WEEK
     Route: 048
  7. XAGRID [Suspect]
     Dosage: 0.5 MG, 2X/DAY:BID
     Route: 048
     Dates: start: 20110222, end: 20110227
  8. MIFLONIDE [Concomitant]
     Indication: PRODUCT USED FOR UNKNOWN INDICATION
     Dosage: 1 DF, 2X/DAY:BID
     Route: 055

REACTIONS (4)
  - CHEST DISCOMFORT [None]
  - ASTHENIA [None]
  - PALPITATIONS [None]
  - TACHYCARDIA [None]
